FAERS Safety Report 6257750-4 (Version None)
Quarter: 2009Q3

REPORT INFORMATION
  Report Type: 
  Country: None (occurrence: None)
  Receive Date: 20090702
  Receipt Date: 20090616
  Transmission Date: 20100115
  Serious: Yes (Other)
  Sender: FDA-Public Use
  Company Number: ALA_00326_2009

PATIENT
  Sex: Female

DRUGS (3)
  1. ROWASA [Suspect]
     Indication: COLITIS ULCERATIVE
     Dosage: 500 MG QD, RECTAL
     Route: 054
     Dates: start: 20090101, end: 20090407
  2. ROWASA [Suspect]
     Indication: COLITIS ULCERATIVE
     Dosage: 500 MG QD, RECTAL
     Route: 054
     Dates: start: 20090407, end: 20090419
  3. ADVIL [Suspect]
     Indication: MIGRAINE
     Dosage: 10 DF, FREQUENCY UNKNOWN ORAL
     Route: 048
     Dates: start: 20090331, end: 20090402

REACTIONS (6)
  - ABDOMINAL PAIN UPPER [None]
  - COLITIS ULCERATIVE [None]
  - CONDITION AGGRAVATED [None]
  - MIGRAINE [None]
  - PANCREATITIS ACUTE [None]
  - PERITONEAL EFFUSION [None]
